FAERS Safety Report 24291241 (Version 1)
Quarter: 2024Q3

REPORT INFORMATION
  Report Type: Spontaneous
  Country: US (occurrence: None)
  Receive Date: 20240906
  Receipt Date: 20240906
  Transmission Date: 20241017
  Serious: No
  Sender: DOMPE FARMACEUTICI
  Company Number: US-FARMAPROD-202308-2403

PATIENT
  Age: 39 Year
  Sex: Male

DRUGS (4)
  1. OXERVATE [Suspect]
     Active Substance: CENEGERMIN-BKBJ
     Indication: Neurotrophic keratopathy
     Route: 047
     Dates: start: 20230802
  2. VITAMINS [Concomitant]
     Active Substance: VITAMINS
     Dosage: GUMMIES.
  3. XIIDRA [Concomitant]
     Active Substance: LIFITEGRAST
  4. LUMIFY [Concomitant]
     Active Substance: BRIMONIDINE TARTRATE

REACTIONS (3)
  - Rash [Not Recovered/Not Resolved]
  - Rhinalgia [Unknown]
  - Ocular hyperaemia [Unknown]

NARRATIVE: CASE EVENT DATE: 20230801
